FAERS Safety Report 9648379 (Version 2)
Quarter: 2014Q1

REPORT INFORMATION
  Report Type: Spontaneous
  Country: IT (occurrence: IT)
  Receive Date: 20131028
  Receipt Date: 20140124
  Transmission Date: 20141002
  Serious: Yes (Hospitalization)
  Sender: FDA-Public Use
  Company Number: IT-NOVOPROD-390709

PATIENT
  Age: 80 Year
  Sex: Female

DRUGS (6)
  1. NOVONORM [Suspect]
     Indication: DIABETES MELLITUS
     Dosage: 2 TAB, QD
     Route: 065
     Dates: start: 20130901, end: 20131012
  2. OMEPRAZOL                          /00661201/ [Concomitant]
     Dosage: UNKNOWN
     Route: 065
  3. CALCIO CARBONATO [Concomitant]
     Dosage: 500 MG, QD
     Route: 065
  4. ATENOLOLO [Concomitant]
     Dosage: 50 MG, QD
     Route: 065
  5. ALLOPURINOLO [Concomitant]
     Dosage: 150 MG, QD
     Route: 065
  6. ROCALTROL [Concomitant]
     Dosage: UNKNOWN
     Route: 065

REACTIONS (1)
  - Hypoglycaemic coma [Recovered/Resolved]
